FAERS Safety Report 8432488-3 (Version None)
Quarter: 2012Q2

REPORT INFORMATION
  Report Type: 
  Country: None (occurrence: None)
  Receive Date: 20120613
  Receipt Date: 20120607
  Transmission Date: 20120825
  Serious: Yes (Death, Hospitalization, Disabling)
  Sender: FDA-Public Use
  Company Number: PHHO2012SG008062

PATIENT
  Sex: Male
  Weight: 46.9 kg

DRUGS (9)
  1. COMPARATOR FORTECORTIN [Suspect]
     Indication: MULTIPLE MYELOMA
     Dosage: 20 MG, UNK
     Route: 048
     Dates: start: 20111219, end: 20120525
  2. COTRIM [Concomitant]
     Indication: ANTIBIOTIC PROPHYLAXIS
     Dosage: UNK
  3. ACYCLOVIR [Concomitant]
     Indication: INFECTION PROPHYLAXIS
     Dosage: 400 MG, BID
     Route: 048
     Dates: start: 20100629
  4. OMEPRAZOLE [Concomitant]
     Indication: PROPHYLAXIS
     Dosage: 40 MG, OM
     Route: 048
     Dates: start: 20100629
  5. BORTEZOMIB [Suspect]
     Indication: MULTIPLE MYELOMA
     Dosage: 2 MG, BOLUS
     Route: 042
     Dates: start: 20111219, end: 20120319
  6. BORTEZOMIB [Suspect]
     Dosage: 1.5 MG, BOLUS
     Route: 042
     Dates: start: 20120402, end: 20120524
  7. TRIMAXAZOLE [Concomitant]
     Indication: INFECTION PROPHYLAXIS
     Dosage: 960 MG, TID
     Route: 048
     Dates: start: 20100806
  8. LBH589 [Suspect]
     Indication: MULTIPLE MYELOMA
     Dosage: 20 MG, UNK
     Route: 048
     Dates: start: 20111219, end: 20120321
  9. LBH589 [Suspect]
     Dosage: 15 MG, UNK
     Route: 048
     Dates: start: 20120402, end: 20120525

REACTIONS (4)
  - DIARRHOEA [None]
  - PULMONARY TUBERCULOSIS [None]
  - PULMONARY SEPSIS [None]
  - THROMBOCYTOPENIA [None]
